FAERS Safety Report 18114753 (Version 2)
Quarter: 2020Q4

REPORT INFORMATION
  Report Type: Spontaneous
  Country: IT (occurrence: IT)
  Receive Date: 20200805
  Receipt Date: 20201008
  Transmission Date: 20210113
  Serious: Yes (Other)
  Sender: FDA-Public Use
  Company Number: IT-UCBSA-2020030438

PATIENT
  Age: 71 Year
  Sex: Male

DRUGS (5)
  1. NEUPRO [Suspect]
     Active Substance: ROTIGOTINE
     Indication: ON AND OFF PHENOMENON
     Dosage: UNKNOWN
  2. AZILECT [Suspect]
     Active Substance: RASAGILINE MESYLATE
     Indication: ON AND OFF PHENOMENON
     Dosage: UNKNOWN
  3. ONGENTYS [Suspect]
     Active Substance: OPICAPONE
     Indication: ON AND OFF PHENOMENON
     Dosage: UNKNOWN
  4. REQUIP [Suspect]
     Active Substance: ROPINIROLE HYDROCHLORIDE
     Indication: ON AND OFF PHENOMENON
     Dosage: UNKNOWN
  5. MADOPAR [Suspect]
     Active Substance: BENSERAZIDE HYDROCHLORIDE\LEVODOPA
     Indication: ON AND OFF PHENOMENON
     Dosage: 125 (UNITS NOT REPORTED), UNKNOWN

REACTIONS (12)
  - Dysphonia [Unknown]
  - Hallucination [Unknown]
  - Freezing phenomenon [Unknown]
  - Delusion [Unknown]
  - Tremor [Unknown]
  - Therapeutic response shortened [Unknown]
  - Sleep disorder [Unknown]
  - Off label use [Unknown]
  - Dysphagia [Unknown]
  - Anosmia [Unknown]
  - Bradykinesia [Unknown]
  - Saliva altered [Unknown]
